FAERS Safety Report 15651796 (Version 1)
Quarter: 2018Q4

REPORT INFORMATION
  Report Type: Report from Study
  Country: SA (occurrence: SA)
  Receive Date: 20181123
  Receipt Date: 20181123
  Transmission Date: 20190205
  Serious: Yes (Other)
  Sender: FDA-Public Use
  Company Number: SA-UCBSA-2018050779

PATIENT

DRUGS (1)
  1. LACOSAMIDE. [Suspect]
     Active Substance: LACOSAMIDE
     Indication: EPILEPSY
     Dosage: 12.5 MG/KG/DAY

REACTIONS (6)
  - Seizure [Unknown]
  - Nystagmus [Unknown]
  - Nervousness [Unknown]
  - Decreased appetite [Unknown]
  - Ataxia [Unknown]
  - Drug ineffective [Unknown]
